FAERS Safety Report 20977125 (Version 1)
Quarter: 2022Q2

REPORT INFORMATION
  Report Type: Spontaneous
  Country: US (occurrence: US)
  Receive Date: 20220617
  Receipt Date: 20220617
  Transmission Date: 20220721
  Serious: No
  Sender: FDA-Public Use
  Company Number: US-ELI_LILLY_AND_COMPANY-US202206003221

PATIENT
  Age: 66 Year
  Sex: Female

DRUGS (3)
  1. BEBTELOVIMAB [Suspect]
     Active Substance: BEBTELOVIMAB
     Indication: COVID-19
     Dosage: UNK UNK, SINGLE
     Route: 042
     Dates: start: 20220526, end: 20220526
  2. COLCHICINE [Concomitant]
     Active Substance: COLCHICINE
     Dosage: UNK UNK, DAILY
     Route: 065
  3. PREDNISONE [Concomitant]
     Active Substance: PREDNISONE
     Dosage: UNK UNK, UNKNOWN
     Route: 065

REACTIONS (18)
  - Pyrexia [Recovered/Resolved]
  - Chest pain [Unknown]
  - Dyspnoea [Unknown]
  - Dizziness [Unknown]
  - Chills [Unknown]
  - Tremor [Unknown]
  - Cough [Unknown]
  - Pain [Not Recovered/Not Resolved]
  - Headache [Unknown]
  - Back pain [Unknown]
  - Chest pain [Unknown]
  - Oxygen saturation decreased [Unknown]
  - Dehydration [Unknown]
  - Blood potassium decreased [Unknown]
  - Inflammation [Unknown]
  - Palpitations [Unknown]
  - Vomiting [Unknown]
  - Nausea [Unknown]

NARRATIVE: CASE EVENT DATE: 20220526
